FAERS Safety Report 6025948-6 (Version None)
Quarter: 2008Q4

REPORT INFORMATION
  Report Type: 
  Country: None (occurrence: None)
  Receive Date: 20081230
  Receipt Date: 20081217
  Transmission Date: 20090506
  Serious: No
  Sender: FDA-Public Use
  Company Number: 20085920

PATIENT
  Sex: Male

DRUGS (1)
  1. LIORESAL [Suspect]
     Indication: MUSCLE SPASTICITY
     Dosage: DAILY, INTRATHECAL
     Route: 037

REACTIONS (5)
  - BURNING SENSATION [None]
  - CATHETER SITE PAIN [None]
  - HYPOAESTHESIA [None]
  - LOCAL SWELLING [None]
  - MUSCLE SPASTICITY [None]
